FAERS Safety Report 7505788-9 (Version None)
Quarter: 2011Q2

REPORT INFORMATION
  Report Type: 
  Country: None (occurrence: None)
  Receive Date: 20110526
  Receipt Date: 20091122
  Transmission Date: 20111010
  Serious: Yes (Death, Hospitalization, Other)
  Sender: FDA-Public Use
  Company Number: US-BAYER-200940172NA

PATIENT
  Age: 68 Year
  Sex: Female
  Weight: 90.703 kg

DRUGS (24)
  1. DIOVAN [Concomitant]
     Dosage: 80 MG, UNK
     Route: 048
     Dates: start: 20051109
  2. ROCEPHIN [Concomitant]
     Dosage: 1 G, UNK
     Route: 042
     Dates: start: 20051211
  3. LIDOCAINE [Concomitant]
     Dosage: 100 MG, UNK
     Route: 042
     Dates: start: 20051221
  4. FENTANYL [Concomitant]
     Dosage: 20 MG, UNK
     Route: 042
     Dates: start: 20051221
  5. TRASYLOL [Suspect]
     Indication: MITRAL VALVE REPAIR
     Dosage: 200ML CARDIOPULMONARY BYPASS PRIME
     Route: 042
     Dates: start: 20051221, end: 20051221
  6. LEVAQUIN [Concomitant]
  7. NITROGLYCERIN [Concomitant]
     Dosage: 53.3 MCG
     Route: 042
     Dates: start: 20051211
  8. PROPOFOL [Concomitant]
  9. VERSED [Concomitant]
     Dosage: 3 MG, UNK
     Route: 042
     Dates: start: 20051221
  10. LASIX [Concomitant]
     Dosage: 40 MG, UNK
     Route: 042
     Dates: start: 20051221
  11. COUMADIN [Concomitant]
     Dosage: UNK
  12. HEPARIN [Concomitant]
     Dosage: 35000 U, UNK
     Route: 042
     Dates: start: 20051221
  13. DIGOXIN [Concomitant]
     Dosage: 0.25 MG, QD
     Route: 048
     Dates: start: 20051109
  14. PROPOFOL [Concomitant]
     Dosage: 150 MG, UNK
     Route: 042
     Dates: start: 20051221
  15. INSULIN [Concomitant]
     Dosage: 30 U, UNK
     Dates: start: 20051221
  16. LOPRESSOR [Concomitant]
     Dosage: 50 MG, BID
     Route: 048
     Dates: start: 20051109
  17. GLUCOPHAGE [Concomitant]
     Dosage: 500 MG, TID
     Route: 048
     Dates: start: 20051109
  18. LASIX [Concomitant]
     Dosage: 40 MG, BID
     Route: 048
     Dates: start: 20051109
  19. PRAVACHOL [Concomitant]
     Dosage: 80 MG, QD
     Route: 048
     Dates: start: 20051109
  20. CARDIZEM [Concomitant]
     Dosage: UNK
     Dates: start: 20051221
  21. PROPOFOL [Concomitant]
     Dosage: 40 MCG
     Route: 042
     Dates: start: 20051211
  22. HYDROCODONE BITARTRATE [Concomitant]
     Dosage: UNK UNK, PRN
  23. DOPAMINE HCL [Concomitant]
  24. NITROGLYCERIN [Concomitant]

REACTIONS (13)
  - DEATH [None]
  - INJURY [None]
  - PAIN [None]
  - MULTI-ORGAN FAILURE [None]
  - RENAL IMPAIRMENT [None]
  - EMOTIONAL DISTRESS [None]
  - STRESS [None]
  - UNEVALUABLE EVENT [None]
  - ANHEDONIA [None]
  - RENAL INJURY [None]
  - RENAL FAILURE [None]
  - ANXIETY [None]
  - FEAR [None]
